FAERS Safety Report 15826276 (Version 1)
Quarter: 2018Q4

REPORT INFORMATION
  Report Type: Spontaneous
  Country: US (occurrence: US)
  Receive Date: 20181218
  Receipt Date: 20181218
  Transmission Date: 20190205
  Serious: No
  Sender: FDA-Public Use
  Company Number: None

PATIENT
  Age: 76 Year

DRUGS (2)
  1. ADCIRCA [Suspect]
     Active Substance: TADALAFIL
     Dates: start: 20170203
  2. ACTEMRA [Concomitant]
     Active Substance: TOCILIZUMAB

REACTIONS (2)
  - Dyspnoea [None]
  - Pruritus generalised [None]

NARRATIVE: CASE EVENT DATE: 20181217
